FAERS Safety Report 5719061-2 (Version None)
Quarter: 2008Q2

REPORT INFORMATION
  Report Type: 
  Country: None (occurrence: None)
  Receive Date: 20080423
  Receipt Date: 20080411
  Transmission Date: 20081010
  Serious: Yes (Death, Other)
  Sender: FDA-Public Use
  Company Number: 2008-00724

PATIENT
  Age: 63 Year
  Sex: Female
  Weight: 53 kg

DRUGS (14)
  1. VELCADE [Suspect]
     Indication: MULTIPLE MYELOMA
     Dosage: 1.60 MG, INTRAVENOUS
     Route: 042
     Dates: start: 20070814, end: 20070907
  2. DEXAMETHASONE TAB [Suspect]
     Indication: MULTIPLE MYELOMA
     Dosage: 20.00 MG, ORAL
     Route: 048
     Dates: start: 20070814, end: 20070908
  3. FUNGUARD [Concomitant]
  4. SUCRALFATE [Concomitant]
  5. OMEPRAL (OMEPRAZOLE) [Concomitant]
  6. PHENYTOIN [Concomitant]
  7. ACYCLOVIR [Concomitant]
  8. LEVOFLOXACIN [Concomitant]
  9. SULFAMETHOXAZOLE AND TRIMETHOPRIM [Concomitant]
  10. PYRINAZIN (PARACETAMOL) [Concomitant]
  11. GABALON (BACLOFEN) [Concomitant]
  12. MEROPEN (MEROPENEM) [Concomitant]
  13. OXYCONTIN [Concomitant]
  14. ZOMETA [Concomitant]

REACTIONS (5)
  - CONSTIPATION [None]
  - DISEASE PROGRESSION [None]
  - DRUG INEFFECTIVE [None]
  - INFECTION [None]
  - NEUROGENIC BLADDER [None]
